FAERS Safety Report 11844971 (Version 4)
Quarter: 2015Q4

REPORT INFORMATION
  Report Type: Spontaneous
  Country: CN (occurrence: CN)
  Receive Date: 20151217
  Receipt Date: 20151229
  Transmission Date: 20160305
  Serious: Yes (Death, Hospitalization)
  Sender: FDA-Public Use
  Company Number: PHHY2015CN164387

PATIENT
  Sex: Male

DRUGS (6)
  1. MYCOPHENOLATE MOFETIL. [Suspect]
     Active Substance: MYCOPHENOLATE MOFETIL
     Indication: IMMUNOSUPPRESSANT DRUG THERAPY
  2. CICLOSPORIN [Suspect]
     Active Substance: CYCLOSPORINE
     Indication: RENAL TRANSPLANT
     Dosage: 6 MG/KG
     Route: 065
  3. MYCOPHENOLATE MOFETIL. [Suspect]
     Active Substance: MYCOPHENOLATE MOFETIL
     Indication: RENAL TRANSPLANT
     Dosage: 2 G, QD
     Route: 065
  4. PREDNISONE. [Suspect]
     Active Substance: PREDNISONE
     Indication: RENAL TRANSPLANT
     Dosage: 0.5 MG/KG
     Route: 065
  5. CICLOSPORIN [Suspect]
     Active Substance: CYCLOSPORINE
     Indication: IMMUNOSUPPRESSANT DRUG THERAPY
  6. PREDNISONE. [Suspect]
     Active Substance: PREDNISONE
     Indication: IMMUNOSUPPRESSANT DRUG THERAPY

REACTIONS (12)
  - Mucormycosis [Fatal]
  - Blindness transient [Not Recovered/Not Resolved]
  - Mucosal necrosis [Unknown]
  - Encephalomalacia [Unknown]
  - Cerebellar infarction [Unknown]
  - Diabetes mellitus [Fatal]
  - Sinusitis [Unknown]
  - Pyrexia [Unknown]
  - Gingival pain [Not Recovered/Not Resolved]
  - Headache [Not Recovered/Not Resolved]
  - Loss of consciousness [Unknown]
  - Gingival swelling [Not Recovered/Not Resolved]
